FAERS Safety Report 9365524 (Version 7)
Quarter: 2013Q4

REPORT INFORMATION
  Report Type: Spontaneous
  Country: US (occurrence: US)
  Receive Date: 20130625
  Receipt Date: 20131119
  Transmission Date: 20140711
  Serious: No
  Sender: FDA-Public Use
  Company Number: US-BIOGENIDEC-2013BI055150

PATIENT
  Age: 60 Year
  Sex: Female

DRUGS (5)
  1. TYSABRI [Suspect]
     Indication: MULTIPLE SCLEROSIS
     Route: 042
     Dates: start: 20121205
  2. GABAPENTIN [Concomitant]
     Indication: COMPLEX PARTIAL SEIZURES
     Route: 048
  3. DEPAKOTE [Concomitant]
     Indication: COMPLEX PARTIAL SEIZURES
     Route: 048
     Dates: end: 201306
  4. SYNTHROID [Concomitant]
     Indication: HYPOTHYROIDISM
     Route: 048
     Dates: start: 201208
  5. DEPAKOTE [Concomitant]
     Indication: CONVULSION
     Route: 048

REACTIONS (35)
  - General symptom [Unknown]
  - Feeling of despair [Unknown]
  - Abasia [Unknown]
  - Procedural haemorrhage [Unknown]
  - Insomnia [Unknown]
  - Ligament sprain [Unknown]
  - Depressed level of consciousness [Recovered/Resolved]
  - General physical health deterioration [Unknown]
  - Wheezing [Unknown]
  - Memory impairment [Unknown]
  - Aphasia [Unknown]
  - Slow speech [Recovered/Resolved]
  - Thyroid disorder [Unknown]
  - Cardiac disorder [Unknown]
  - Confusional state [Recovered/Resolved]
  - Anxiety [Unknown]
  - Speech disorder [Recovered/Resolved with Sequelae]
  - Prosthesis implantation [Unknown]
  - Polymenorrhoea [Unknown]
  - Frustration [Unknown]
  - Cognitive disorder [Unknown]
  - Balance disorder [Unknown]
  - Sensory loss [Not Recovered/Not Resolved]
  - Hypoaesthesia [Not Recovered/Not Resolved]
  - Loss of control of legs [Recovered/Resolved]
  - Lower limb fracture [Unknown]
  - Weight decreased [Not Recovered/Not Resolved]
  - Malaise [Recovered/Resolved]
  - Nausea [Recovered/Resolved]
  - Fatigue [Unknown]
  - Vomiting [Recovered/Resolved]
  - Multiple sclerosis relapse [Recovered/Resolved]
  - Multiple sclerosis [Unknown]
  - Asthenia [Unknown]
  - Alopecia [Not Recovered/Not Resolved]
